FAERS Safety Report 20415097 (Version 1)
Quarter: 2022Q1

REPORT INFORMATION
  Report Type: Report from Study
  Country: US (occurrence: US)
  Receive Date: 20220202
  Receipt Date: 20220202
  Transmission Date: 20220424
  Serious: Yes (Hospitalization)
  Sender: FDA-Public Use
  Company Number: US-ABBVIE-22K-163-4260175-00

PATIENT
  Sex: Female

DRUGS (1)
  1. VENCLEXTA [Suspect]
     Active Substance: VENETOCLAX
     Indication: Acute myeloid leukaemia
     Dosage: WITH BREAKFAST AND FULL GLASS OF WATER
     Route: 048
     Dates: start: 20211228, end: 20220119

REACTIONS (2)
  - Pyrexia [Recovering/Resolving]
  - Dry mouth [Recovering/Resolving]
